FAERS Safety Report 9977560 (Version 1)
Quarter: 2014Q1

REPORT INFORMATION
  Report Type: Report from Study
  Country: US (occurrence: US)
  Receive Date: 20140306
  Receipt Date: 20140306
  Transmission Date: 20141002
  Serious: No
  Sender: FDA-Public Use
  Company Number: US-ABBVIE-13P-163-1162628-00

PATIENT
  Age: 64 Year
  Sex: Female

DRUGS (5)
  1. HUMIRA [Suspect]
     Indication: RHEUMATOID ARTHRITIS
     Dosage: THE 15TH AND 30TH OF EVERY MONTH
     Dates: start: 2009
  2. METHOTREXATE [Concomitant]
     Indication: PRODUCT USED FOR UNKNOWN INDICATION
  3. BONIVA [Concomitant]
     Indication: OSTEOPOROSIS
  4. TOPROL [Concomitant]
     Indication: CARDIAC DISORDER
     Dosage: GENERIC
  5. UNKNOWN CHOLESTEROL MEDICATION [Concomitant]
     Indication: BLOOD CHOLESTEROL

REACTIONS (1)
  - Productive cough [Not Recovered/Not Resolved]
